FAERS Safety Report 8844672 (Version 1)
Quarter: 2012Q4

REPORT INFORMATION
  Report Type: Spontaneous
  Country: US (occurrence: None)
  Receive Date: 20121012
  Receipt Date: 20121012
  Transmission Date: 20130627
  Serious: Yes (Hospitalization)
  Sender: FDA-Public Use
  Company Number: TIR-01339

PATIENT
  Sex: Male

DRUGS (1)
  1. TIROSINT [Suspect]

REACTIONS (1)
  - Hospitalisation [None]
